FAERS Safety Report 16806697 (Version 3)
Quarter: 2022Q1

REPORT INFORMATION
  Report Type: Spontaneous
  Country: US (occurrence: US)
  Receive Date: 20190913
  Receipt Date: 20220302
  Transmission Date: 20220424
  Serious: No
  Sender: FDA-Public Use
  Company Number: US-PFIZER INC-2019282063

PATIENT
  Age: 69 Year
  Sex: Female

DRUGS (12)
  1. DOCETAXEL [Suspect]
     Active Substance: DOCETAXEL
     Indication: Invasive ductal breast carcinoma
     Dosage: UNK, CYCLIC (06 CYCLES, EVERY 3 WEEKS)
     Dates: start: 20121029, end: 20130211
  2. PAROXETINE [Concomitant]
     Active Substance: PAROXETINE
     Dosage: UNK
     Dates: start: 2005
  3. BUSPIRONE [Concomitant]
     Active Substance: BUSPIRONE HYDROCHLORIDE
     Dosage: UNK
     Dates: start: 2009
  4. BUPROPION [Concomitant]
     Active Substance: BUPROPION
     Dosage: UNK
     Dates: start: 2005
  5. OMEPRAZOLE [Concomitant]
     Active Substance: OMEPRAZOLE
     Dosage: UNK
     Dates: start: 2010
  6. TRAZODONE [Concomitant]
     Active Substance: TRAZODONE HYDROCHLORIDE
     Dosage: UNK
     Dates: start: 2005
  7. SYMBICORT [Concomitant]
     Active Substance: BUDESONIDE\FORMOTEROL FUMARATE DIHYDRATE
     Dosage: UNK
  8. OLMESARTAN [Concomitant]
     Active Substance: OLMESARTAN
     Dosage: UNK
     Dates: start: 2012
  9. LEVOCETIRIZINE [Concomitant]
     Active Substance: LEVOCETIRIZINE
     Dosage: UNK
     Dates: start: 2010
  10. NEOSAR [Concomitant]
     Active Substance: CYCLOPHOSPHAMIDE
     Indication: Chemotherapy
     Dosage: UNK
  11. TAXOTERE [Concomitant]
     Active Substance: DOCETAXEL
     Indication: Chemotherapy
     Dosage: UNK
  12. CYTOXAN [Concomitant]
     Active Substance: CYCLOPHOSPHAMIDE
     Indication: Chemotherapy
     Dosage: UNK

REACTIONS (5)
  - Alopecia [Not Recovered/Not Resolved]
  - Hair texture abnormal [Not Recovered/Not Resolved]
  - Hair disorder [Not Recovered/Not Resolved]
  - Hair colour changes [Not Recovered/Not Resolved]
  - Madarosis [Not Recovered/Not Resolved]

NARRATIVE: CASE EVENT DATE: 20121001
